FAERS Safety Report 12075010 (Version 1)
Quarter: 2016Q1

REPORT INFORMATION
  Report Type: Spontaneous
  Country: US (occurrence: US)
  Receive Date: 20160212
  Receipt Date: 20160212
  Transmission Date: 20160526
  Serious: Yes (Hospitalization, Other)
  Sender: FDA-Public Use
  Company Number: US-GLAXOSMITHKLINE-US2016020093

PATIENT
  Age: 62 Year
  Sex: Male

DRUGS (11)
  1. VENTOLIN HFA [Suspect]
     Active Substance: ALBUTEROL SULFATE
     Indication: CHRONIC OBSTRUCTIVE PULMONARY DISEASE
     Route: 055
     Dates: start: 201011
  2. BACTROBAN [Concomitant]
     Active Substance: MUPIROCIN\MUPIROCIN CALCIUM
  3. RHINOCORT (BUDESONID) [Concomitant]
  4. TRIAMCINOLONE CREAM [Concomitant]
  5. SPIRIVA [Concomitant]
     Active Substance: TIOTROPIUM BROMIDE MONOHYDRATE
  6. NORVASC [Concomitant]
     Active Substance: AMLODIPINE BESYLATE
  7. ASPIRIN. [Concomitant]
     Active Substance: ASPIRIN
  8. NITROSTAT [Concomitant]
     Active Substance: NITROGLYCERIN
  9. ADVAIR DISKUS [Suspect]
     Active Substance: FLUTICASONE PROPIONATE\SALMETEROL XINAFOATE
     Indication: CHRONIC OBSTRUCTIVE PULMONARY DISEASE
     Dosage: 250/50 UG
     Route: 055
     Dates: start: 201402
  10. ESTER-C [Concomitant]
     Active Substance: CALCIUM\VITAMINS
  11. ATIVAN [Concomitant]
     Active Substance: LORAZEPAM

REACTIONS (2)
  - Pneumonia [Unknown]
  - Pulmonary mass [Unknown]

NARRATIVE: CASE EVENT DATE: 20131018
